FAERS Safety Report 6694959-X (Version None)
Quarter: 2010Q2

REPORT INFORMATION
  Report Type: 
  Country: None (occurrence: None)
  Receive Date: 20100421
  Receipt Date: 20100408
  Transmission Date: 20101027
  Serious: Yes (Other)
  Sender: FDA-Public Use
  Company Number: FR-1181482

PATIENT
  Age: 69 Year
  Sex: Female

DRUGS (1)
  1. TRAVATAN [Suspect]
     Dosage: OPHTHALMIC
     Route: 047

REACTIONS (4)
  - FACIAL PALSY [None]
  - HEADACHE [None]
  - SKIN HYPERPIGMENTATION [None]
  - VISION BLURRED [None]
